FAERS Safety Report 5534009-1 (Version None)
Quarter: 2007Q4

REPORT INFORMATION
  Report Type: 
  Country: None (occurrence: None)
  Receive Date: 20071130
  Receipt Date: 20071120
  Transmission Date: 20080405
  Serious: Yes (Other)
  Sender: FDA-Public Use
  Company Number: 2007SP023438

PATIENT
  Age: 43 Year
  Sex: Male
  Weight: 102.5129 kg

DRUGS (2)
  1. PEG-INTRON [Suspect]
     Indication: HEPATITIS C
     Dosage: SC
     Route: 058
     Dates: start: 20070914
  2. RIBAVIRIN [Suspect]
     Indication: HEPATITIS C
     Dosage: PO
     Route: 048
     Dates: start: 20070914

REACTIONS (9)
  - CHAPPED LIPS [None]
  - DEHYDRATION [None]
  - DIARRHOEA [None]
  - MUSCLE ATROPHY [None]
  - NAUSEA [None]
  - ORAL INTAKE REDUCED [None]
  - PYREXIA [None]
  - VOMITING [None]
  - WEIGHT DECREASED [None]
